FAERS Safety Report 20013189 (Version 1)
Quarter: 2021Q4

REPORT INFORMATION
  Report Type: Spontaneous
  Country: BR (occurrence: BR)
  Receive Date: 20211029
  Receipt Date: 20211029
  Transmission Date: 20220304
  Serious: Yes (Disabling)
  Sender: FDA-Public Use
  Company Number: BR-SA-SAC20211012001150

PATIENT
  Sex: Male

DRUGS (2)
  1. CLOBAZAM [Suspect]
     Active Substance: CLOBAZAM
     Indication: Epilepsy
     Dosage: 10 MG, QD
     Route: 065
     Dates: start: 202008, end: 202108
  2. VALPROATE SODIUM [Concomitant]
     Active Substance: VALPROATE SODIUM
     Indication: Epilepsy
     Route: 065

REACTIONS (12)
  - Mental disability [Recovering/Resolving]
  - Developmental delay [Recovering/Resolving]
  - Decreased interest [Recovering/Resolving]
  - Decreased eye contact [Recovering/Resolving]
  - Balance disorder [Recovering/Resolving]
  - Loss of personal independence in daily activities [Recovering/Resolving]
  - Aphasia [Recovering/Resolving]
  - Apathy [Recovering/Resolving]
  - Fall [Unknown]
  - Abnormal behaviour [Recovering/Resolving]
  - Asthenia [Recovering/Resolving]
  - Product use issue [Unknown]
